FAERS Safety Report 17270880 (Version 2)
Quarter: 2022Q1

REPORT INFORMATION
  Report Type: Spontaneous
  Country: GB (occurrence: GB)
  Receive Date: 20200115
  Receipt Date: 20220228
  Transmission Date: 20220423
  Serious: Yes (Hospitalization, Other)
  Sender: FDA-Public Use
  Company Number: None

PATIENT

DRUGS (2)
  1. PREDNISOLONE [Suspect]
     Active Substance: PREDNISOLONE
     Indication: Anal prolapse
     Dosage: 10 MG, QD; TABLET
  2. SIMVASTATIN [Suspect]
     Active Substance: SIMVASTATIN
     Dosage: AT NIGHT

REACTIONS (2)
  - Night sweats [Unknown]
  - Dizziness [Not Recovered/Not Resolved]
